FAERS Safety Report 18071988 (Version 4)
Quarter: 2021Q2

REPORT INFORMATION
  Report Type: Spontaneous
  Country: US (occurrence: US)
  Receive Date: 20200727
  Receipt Date: 20210512
  Transmission Date: 20210717
  Serious: No
  Sender: FDA-Public Use
  Company Number: US-PFIZER INC-2020282740

PATIENT
  Age: 69 Year
  Sex: Female
  Weight: 83.46 kg

DRUGS (3)
  1. XANAX [Suspect]
     Active Substance: ALPRAZOLAM
     Dosage: 0.25 MG, 1X/DAY, (SHE HAS ONLY BEEN TAKING IT ONCE A DAY)
  2. NARDIL [Concomitant]
     Active Substance: PHENELZINE SULFATE
     Indication: DEPRESSION
  3. NARDIL [Concomitant]
     Active Substance: PHENELZINE SULFATE
     Indication: ANXIETY
     Dosage: 15 MG, ALTERNATE DAY

REACTIONS (1)
  - Drug ineffective [Recovered/Resolved]
